FAERS Safety Report 6998326-0 (Version None)
Quarter: 2010Q3

REPORT INFORMATION
  Report Type: 
  Country: None (occurrence: None)
  Receive Date: 20100920
  Receipt Date: 20100906
  Transmission Date: 20110219
  Serious: Yes (Life-Threatening, Hospitalization, Other)
  Sender: FDA-Public Use
  Company Number: JP-JNJFOC-20091207506

PATIENT
  Sex: Female
  Weight: 55 kg

DRUGS (13)
  1. REMICADE [Suspect]
     Indication: RHEUMATOID ARTHRITIS
     Route: 042
  2. REMICADE [Suspect]
     Route: 042
  3. REMICADE [Suspect]
     Route: 042
  4. REMICADE [Suspect]
     Route: 042
  5. REMICADE [Suspect]
     Route: 042
  6. REMICADE [Suspect]
     Route: 042
  7. REMICADE [Suspect]
     Dosage: 8TH INFUSION
     Route: 042
  8. REMICADE [Suspect]
     Route: 042
  9. ISCOTIN [Suspect]
     Indication: TUBERCULOSIS
  10. ESANBUTOL [Suspect]
     Indication: TUBERCULOSIS
  11. RIFAMPICIN [Suspect]
     Indication: TUBERCULOSIS
  12. METHOTREXATE [Concomitant]
     Indication: RHEUMATOID ARTHRITIS
     Route: 048
  13. FOLIAMIN [Concomitant]
     Route: 048

REACTIONS (1)
  - NECROTISING GRANULOMATOUS LYMPHADENITIS [None]
